FAERS Safety Report 4890126-0 (Version None)
Quarter: 2006Q1

REPORT INFORMATION
  Report Type: 
  Country: None (occurrence: None)
  Receive Date: 20060124
  Receipt Date: 20051201
  Transmission Date: 20060701
  Serious: No
  Sender: FDA-Public Use
  Company Number: JP-ABBOTT-05P-087-0318530-00

PATIENT
  Sex: Female

DRUGS (9)
  1. SEVOFLURANE [Suspect]
     Indication: ANAESTHESIA
     Dosage: 1-2 %
     Route: 055
     Dates: start: 20050617, end: 20050617
  2. LIDOCAINE [Suspect]
     Indication: ANAESTHESIA
     Dosage: 3 TO 7 MILLILITERS/HOUR
     Route: 008
     Dates: start: 20050617, end: 20050617
  3. LIDOCAINE [Suspect]
     Route: 008
  4. NITROUS OXIDE W/ OXYGEN [Concomitant]
     Indication: ANAESTHESIA
     Route: 055
     Dates: start: 20050617, end: 20050617
  5. ATROPINE SULFATE [Concomitant]
     Indication: PREMEDICATION
     Route: 030
     Dates: start: 20050617, end: 20050617
  6. PROPOFOL [Concomitant]
     Indication: SEDATION
     Route: 042
     Dates: start: 20050617, end: 20050617
  7. VECURONIUM BROMIDE [Concomitant]
     Indication: MUSCLE RELAXANT THERAPY
     Route: 042
     Dates: start: 20050617, end: 20050617
  8. LIDOCAINE [Concomitant]
     Indication: ANALGESIC EFFECT
     Dosage: MG/KG/HR
     Route: 008
     Dates: start: 20050617, end: 20050617
  9. ATROPINE SULFATE [Concomitant]
     Indication: ANAESTHESIA REVERSAL
     Route: 042
     Dates: start: 20050617, end: 20050617

REACTIONS (1)
  - DELAYED RECOVERY FROM ANAESTHESIA [None]
